FAERS Safety Report 8279927-9 (Version None)
Quarter: 2012Q2

REPORT INFORMATION
  Report Type: 
  Country: None (occurrence: None)
  Receive Date: 20120412
  Receipt Date: 20120409
  Transmission Date: 20120825
  Serious: No
  Sender: FDA-Public Use
  Company Number: US-PFIZER INC-2012053076

PATIENT
  Sex: Female
  Weight: 66.667 kg

DRUGS (4)
  1. CHANTIX [Suspect]
     Dosage: UNK; ONCE A DAY
     Dates: start: 20120101
  2. CHANTIX [Suspect]
     Indication: SMOKING CESSATION THERAPY
     Dosage: 0.5 MG, 1X/DAY
     Route: 048
     Dates: start: 20120225, end: 20120101
  3. CHANTIX [Suspect]
     Dosage: UNK; TWICE A DAY
     Route: 048
     Dates: start: 20120101, end: 20120101
  4. LEVOTHYROXINE [Concomitant]
     Indication: THYROID DISORDER
     Dosage: 75 UG, 1X/DAY

REACTIONS (3)
  - NIGHTMARE [None]
  - LETHARGY [None]
  - ABNORMAL DREAMS [None]
